FAERS Safety Report 9015829 (Version 2)
Quarter: 2013Q1

REPORT INFORMATION
  Report Type: Report from Study
  Country: US (occurrence: US)
  Receive Date: 20130116
  Receipt Date: 20130129
  Transmission Date: 20140127
  Serious: Yes (Hospitalization)
  Sender: FDA-Public Use
  Company Number: US-PFIZER INC-2013009507

PATIENT
  Age: 71 Year
  Sex: Female
  Weight: 60.33 kg

DRUGS (9)
  1. IRINOTECAN HCL [Suspect]
     Indication: COLORECTAL CANCER METASTATIC
     Dosage: 180 MG/M2, DAY 1 EVERY 14 DAYS
     Route: 042
     Dates: start: 20121218
  2. FLUOROURACIL [Suspect]
     Indication: COLORECTAL CANCER METASTATIC
     Dosage: 400 MG/M2, DAY 1 EVERY 14 DAYS
     Route: 040
     Dates: start: 20121218
  3. FLUOROURACIL [Suspect]
     Dosage: 2400 MG/M2, DAYS 1 AND 2 EVERY 14 DAYS
     Route: 042
     Dates: start: 20121218
  4. BLINDED THERAPY [Suspect]
     Indication: COLORECTAL CANCER METASTATIC
     Dosage: UNK
     Dates: start: 20121218, end: 20121218
  5. FOLINIC ACID [Suspect]
     Indication: COLORECTAL CANCER METASTATIC
     Dosage: 400 MG/M2, DAY 1 EVERY 14 DAYS
     Route: 042
     Dates: start: 20121218
  6. HYDROCHLOROTHIAZIDE [Concomitant]
     Dosage: UNK
     Dates: start: 20120410
  7. PREMARIN [Concomitant]
     Dosage: UNK
     Dates: start: 20120410
  8. CALCIUM [Concomitant]
     Dosage: UNK
     Dates: start: 20120410
  9. POTASSIUM [Concomitant]
     Dosage: UNK
     Dates: start: 20120410

REACTIONS (1)
  - Pulmonary oedema [Recovered/Resolved with Sequelae]
